FAERS Safety Report 12218585 (Version 2)
Quarter: 2016Q2

REPORT INFORMATION
  Report Type: Spontaneous
  Country: ES (occurrence: ES)
  Receive Date: 20160329
  Receipt Date: 20160629
  Transmission Date: 20160815
  Serious: Yes (Hospitalization, Other)
  Sender: FDA-Public Use
  Company Number: ES-PFIZER INC-2016173122

PATIENT
  Age: 23 Year
  Sex: Male

DRUGS (2)
  1. TOBRAMYCIN. [Concomitant]
     Active Substance: TOBRAMYCIN
     Indication: BRONCHITIS
     Dosage: 400 MG, DAILY
  2. PIPERACILLIN/TAZOBACTAM [Suspect]
     Active Substance: PIPERACILLIN SODIUM\TAZOBACTAM SODIUM
     Indication: BRONCHITIS
     Dosage: UNK, 3X/DAY (4/0.5 G/8 HOURS)

REACTIONS (10)
  - Prothrombin time prolonged [None]
  - Liver disorder [None]
  - Blood lactate dehydrogenase increased [None]
  - Anaemia [None]
  - Pyrexia [Unknown]
  - Kaolin cephalin clotting time prolonged [None]
  - Bone marrow toxicity [Recovering/Resolving]
  - Thrombocytopenia [None]
  - Coagulopathy [None]
  - Aspartate aminotransferase increased [None]
